FAERS Safety Report 8089642-2 (Version None)
Quarter: 2012Q1

REPORT INFORMATION
  Report Type: 
  Country: None (occurrence: None)
  Receive Date: 20120128
  Receipt Date: 20110819
  Transmission Date: 20120608
  Serious: No
  Sender: FDA-Public Use
  Company Number: US-ABBOTT-11P-163-0728695-00

PATIENT
  Sex: Male

DRUGS (17)
  1. HUMIRA [Suspect]
     Indication: PSORIASIS
  2. OXYCODONE HCL [Concomitant]
     Indication: PRODUCT USED FOR UNKNOWN INDICATION
  3. IBUPROFEN [Concomitant]
     Indication: PRODUCT USED FOR UNKNOWN INDICATION
  4. HYDROXYZINE PAMOATE [Concomitant]
     Indication: INSOMNIA
  5. XANAX [Concomitant]
     Indication: PRODUCT USED FOR UNKNOWN INDICATION
     Dosage: ONE AT HS
  6. NAPROSYN [Concomitant]
     Indication: PRODUCT USED FOR UNKNOWN INDICATION
     Dosage: ONE TWICE DAILY AS NEEDED
  7. HYDROCHLOROTHIAZIDE [Concomitant]
     Indication: PRODUCT USED FOR UNKNOWN INDICATION
  8. TRAZODONE HCL [Concomitant]
     Indication: INSOMNIA
     Dosage: TWO AT HS
  9. BENADRYL [Concomitant]
     Indication: PRODUCT USED FOR UNKNOWN INDICATION
  10. GABAPENTIN [Concomitant]
     Indication: PRODUCT USED FOR UNKNOWN INDICATION
  11. METOPROLOL TARTRATE [Concomitant]
     Indication: PRODUCT USED FOR UNKNOWN INDICATION
  12. VENLAFAXINE HCL [Concomitant]
     Indication: PRODUCT USED FOR UNKNOWN INDICATION
     Dosage: THREE TIMES DAILY, AS NEEDED
  13. HYDROCHLOROTHIAZIDE [Concomitant]
     Indication: PRODUCT USED FOR UNKNOWN INDICATION
  14. UNSPECIFIED CREAMS FOR PSORIASIS [Concomitant]
     Indication: PSORIASIS
     Dosage: NOT REPORTED
  15. HUMIRA [Suspect]
  16. CYCLOBENZAPRINE [Concomitant]
     Indication: PRODUCT USED FOR UNKNOWN INDICATION
     Dosage: THREE TIMES DAILY, AS NEEDED
  17. DIAZEPAM [Concomitant]
     Indication: PRODUCT USED FOR UNKNOWN INDICATION

REACTIONS (2)
  - DYSURIA [None]
  - PSORIASIS [None]
